FAERS Safety Report 4319577-X (Version None)
Quarter: 2004Q1

REPORT INFORMATION
  Report Type: 
  Country: None (occurrence: None)
  Receive Date: 20040319
  Receipt Date: 20040127
  Transmission Date: 20041129
  Serious: Yes (Life-Threatening, Hospitalization)
  Sender: FDA-Public Use
  Company Number: US-ROCHE-357392

PATIENT
  Age: 45 Year
  Sex: Female
  Weight: 75.3 kg

DRUGS (5)
  1. COPEGUS [Suspect]
     Indication: HEPATITIS C
     Route: 048
     Dates: start: 20031101, end: 20031219
  2. PEG-INTRON [Suspect]
     Indication: HEPATITIS C
     Route: 058
     Dates: start: 20031101, end: 20031219
  3. REBETOL [Concomitant]
     Indication: HEPATITIS C
     Route: 065
  4. LEXAPRO [Concomitant]
     Indication: DEPRESSION
     Dosage: DOSE REPORTED AS 20 MG.
     Dates: start: 20031023
  5. XANAX [Concomitant]
     Indication: ANXIETY
     Dosage: DOSE REPORTED AS 2 MG.

REACTIONS (12)
  - AGGRESSION [None]
  - ALOPECIA [None]
  - AMNESIA [None]
  - CARDIO-RESPIRATORY ARREST [None]
  - CRYING [None]
  - DIARRHOEA [None]
  - HEPATIC FAILURE [None]
  - JAUNDICE [None]
  - PSYCHOTIC DISORDER [None]
  - SYNCOPE [None]
  - TREMOR [None]
  - VOMITING [None]
